FAERS Safety Report 12050905 (Version 1)
Quarter: 2016Q1

REPORT INFORMATION
  Report Type: Report from Study
  Country: CA (occurrence: CA)
  Receive Date: 20160209
  Receipt Date: 20160209
  Transmission Date: 20160526
  Serious: Yes (Hospitalization, Other)
  Sender: FDA-Public Use
  Company Number: CA-SA-2015SA210935

PATIENT
  Age: 66 Year
  Sex: Male
  Weight: 66.7 kg

DRUGS (25)
  1. NOVOLIN [Concomitant]
     Active Substance: INSULIN HUMAN
     Route: 065
     Dates: start: 2008
  2. LEVOFLOXACIN. [Concomitant]
     Active Substance: LEVOFLOXACIN
     Dates: start: 20151215
  3. AMLODIPINE [Concomitant]
     Active Substance: AMLODIPINE BESYLATE
     Route: 065
     Dates: start: 2012
  4. VALSARTAN. [Concomitant]
     Active Substance: VALSARTAN
     Dates: start: 2012
  5. SPIRONOLACTONE. [Concomitant]
     Active Substance: SPIRONOLACTONE
     Route: 065
     Dates: start: 2012
  6. ASPIRIN. [Concomitant]
     Active Substance: ASPIRIN
     Route: 065
     Dates: start: 1995
  7. TRAMADOL. [Concomitant]
     Active Substance: TRAMADOL
     Dates: start: 20151210
  8. SENOKOT [Concomitant]
     Active Substance: SENNOSIDES
     Dates: start: 20151125
  9. METFORMIN [Concomitant]
     Active Substance: METFORMIN HYDROCHLORIDE
     Dates: start: 2008
  10. NPH INSULIN [Concomitant]
     Active Substance: INSULIN BEEF
     Dosage: DOSE:22 UNIT(S)
     Dates: start: 20151209
  11. OXALIPLATIN. [Suspect]
     Active Substance: OXALIPLATIN
     Route: 042
     Dates: start: 20151202, end: 20151202
  12. IRINOTECAN [Suspect]
     Active Substance: IRINOTECAN
     Route: 042
     Dates: start: 20151202, end: 20151202
  13. VITAMIN B12 [Concomitant]
     Active Substance: CYANOCOBALAMIN
     Dates: start: 1995
  14. OXALIPLATIN. [Suspect]
     Active Substance: OXALIPLATIN
     Route: 042
     Dates: end: 20160104
  15. OMEPRAZOLE. [Concomitant]
     Active Substance: OMEPRAZOLE
     Dates: start: 20151118
  16. HYDROCHLOROTHIAZIDE. [Concomitant]
     Active Substance: HYDROCHLOROTHIAZIDE
     Dates: start: 20151118
  17. MORPHINE [Concomitant]
     Active Substance: MORPHINE
     Dosage: 2.5-5MG DAILY DOSE
     Dates: start: 201508
  18. PANTOPRAZOLE [Concomitant]
     Active Substance: PANTOPRAZOLE SODIUM
     Dates: start: 20151211
  19. LACTULOSE. [Concomitant]
     Active Substance: LACTULOSE
     Dates: start: 20151125
  20. ATORVASTATIN [Concomitant]
     Active Substance: ATORVASTATIN
     Dates: start: 20151118
  21. ATENOLOL. [Concomitant]
     Active Substance: ATENOLOL
     Dates: start: 2012
  22. METFORMIN [Concomitant]
     Active Substance: METFORMIN HYDROCHLORIDE
     Dates: start: 2008
  23. FOLIC ACID. [Concomitant]
     Active Substance: FOLIC ACID
     Route: 065
     Dates: start: 1995
  24. NICOTINE. [Concomitant]
     Active Substance: NICOTINE
     Dosage: PATCH
     Dates: start: 20151209
  25. DALTEPARIN [Concomitant]
     Active Substance: DALTEPARIN
     Dates: start: 20151216

REACTIONS (3)
  - Peripheral ischaemia [Recovered/Resolved with Sequelae]
  - Thrombosis [Recovered/Resolved with Sequelae]
  - Myocardial infarction [Recovered/Resolved]

NARRATIVE: CASE EVENT DATE: 20151208
